FAERS Safety Report 16103210 (Version 15)
Quarter: 2022Q3

REPORT INFORMATION
  Report Type: Other
  Country: GB (occurrence: GB)
  Receive Date: 20190322
  Receipt Date: 20220929
  Transmission Date: 20221027
  Serious: Yes (Hospitalization, Other)
  Sender: FDA-Public Use
  Company Number: GB-MACLEODS PHARMACEUTICALS US LTD-MAC2019020516

PATIENT

DRUGS (38)
  1. QUETIAPINE [Interacting]
     Active Substance: QUETIAPINE
     Indication: Depression
     Dosage: UNK
     Route: 048
     Dates: start: 20150826
  2. IVABRADINE [Interacting]
     Active Substance: IVABRADINE
     Indication: Angina pectoris
     Dosage: 5 MILLIGRAM, QD
     Route: 065
     Dates: start: 20150211
  3. IVABRADINE [Interacting]
     Active Substance: IVABRADINE
     Dosage: 5 MILLIGRAM, BID
     Route: 065
     Dates: start: 20150211
  4. IVABRADINE [Interacting]
     Active Substance: IVABRADINE
     Dosage: 5 MILLIGRAM
     Route: 065
     Dates: start: 20150211
  5. IVABRADINE [Interacting]
     Active Substance: IVABRADINE
     Dosage: 10 MILLIGRAM, BID
     Route: 065
     Dates: start: 20150211
  6. IVABRADINE [Interacting]
     Active Substance: IVABRADINE
     Dosage: 5 MILLIGRAM, BID; IVABRADINE HYDROCHLORIDE
     Route: 065
     Dates: start: 20150211
  7. OMEPRAZOLE [Interacting]
     Active Substance: OMEPRAZOLE
     Indication: Dyspepsia
     Dosage: UNK
     Route: 048
     Dates: start: 20110616
  8. OMEPRAZOLE [Interacting]
     Active Substance: OMEPRAZOLE
     Indication: Duodenal ulcer
     Dosage: UNK, TABLET
     Route: 048
     Dates: start: 20140116
  9. RAMIPRIL [Interacting]
     Active Substance: RAMIPRIL
     Indication: Cardiac failure
     Dosage: 1.25 MILLIGRAM, QD
     Route: 048
     Dates: start: 20130813, end: 20160629
  10. CARVEDILOL [Interacting]
     Active Substance: CARVEDILOL
     Indication: Angina pectoris
     Dosage: 25 MILLIGRAM, BID
     Route: 048
     Dates: start: 20110616
  11. BOCOCIZUMAB [Interacting]
     Active Substance: BOCOCIZUMAB
     Indication: Cardiovascular disorder
     Dosage: 150 MILLIGRAM , FREQUENCY- EVERY 2 WEEKS (SOLUTION FOR INJECTION, QOW)
     Route: 058
     Dates: start: 20150908, end: 20161101
  12. BOCOCIZUMAB [Interacting]
     Active Substance: BOCOCIZUMAB
     Dosage: 25 MILLIGRAM, BID (MERUS PRODUCT FORMULATION :TABLET)
     Route: 065
     Dates: start: 20110616
  13. ISOSORBIDE MONONITRATE [Interacting]
     Active Substance: ISOSORBIDE MONONITRATE
     Indication: Angina pectoris
     Dosage: 10 MILLIGRAM, QD, ORAL FORMULATION: DURULE
     Route: 048
     Dates: start: 20160205
  14. FUROSEMIDE [Interacting]
     Active Substance: FUROSEMIDE
     Indication: Left ventricular dysfunction
     Dosage: 40 MILLIGRAM, QD
     Route: 065
     Dates: start: 20160402
  15. FUROSEMIDE [Interacting]
     Active Substance: FUROSEMIDE
     Indication: Lung disorder
     Dosage: 40 MILLIGRAM, QD; TABLET
     Route: 065
     Dates: start: 20160402
  16. FUROSEMIDE [Interacting]
     Active Substance: FUROSEMIDE
     Indication: Pulmonary oedema
     Dosage: 40 MILLIGRAM, QD,
     Route: 065
     Dates: start: 20160402
  17. FUROSEMIDE [Interacting]
     Active Substance: FUROSEMIDE
     Indication: Pleural effusion
     Dosage: UNK
     Route: 065
  18. FUROSEMIDE [Interacting]
     Active Substance: FUROSEMIDE
     Dosage: 80 MILLIGRAM, QD, TABLET
     Route: 048
     Dates: start: 20160402
  19. NITROGLYCERIN [Concomitant]
     Active Substance: NITROGLYCERIN
     Indication: Pain
     Dosage: UNK (TABLET)
     Route: 065
     Dates: start: 20130902
  20. NITROGLYCERIN [Concomitant]
     Active Substance: NITROGLYCERIN
     Indication: Cardiovascular disorder
     Dosage: UNK
     Route: 065
  21. ENTRESTO [Concomitant]
     Active Substance: SACUBITRIL\VALSARTAN
     Indication: Left ventricular dysfunction
     Dosage: UNK, SACUBITRIL 49/VALSARTAN 51
     Route: 065
     Dates: start: 20160601
  22. ENTRESTO [Concomitant]
     Active Substance: SACUBITRIL\VALSARTAN
     Indication: Ventricular dysfunction
     Dosage: UNK, SACUBITRIL 49/VALSARTAN 51
     Route: 065
     Dates: start: 20160701
  23. ENTRESTO [Concomitant]
     Active Substance: SACUBITRIL\VALSARTAN
     Dosage: UNK, SACUBITRIL 49/VALSARTAN 51
     Route: 048
     Dates: start: 20160601
  24. ACETAMINOPHEN [Concomitant]
     Active Substance: ACETAMINOPHEN
     Indication: Pain in extremity
     Dosage: UNK (TABLET)
     Route: 065
     Dates: start: 20110616
  25. ACETAMINOPHEN [Concomitant]
     Active Substance: ACETAMINOPHEN
     Dosage: UNK
     Route: 065
     Dates: start: 20110616
  26. ACETAMINOPHEN [Concomitant]
     Active Substance: ACETAMINOPHEN
     Dosage: UNK
     Route: 065
     Dates: start: 20160616
  27. ACETAMINOPHEN [Concomitant]
     Active Substance: ACETAMINOPHEN
     Dosage: UNK
  28. METHOTREXATE [Concomitant]
     Active Substance: METHOTREXATE
     Indication: Psoriasis
     Dosage: UNK
     Route: 065
     Dates: start: 20150727
  29. BETAMETHASONE DIPROPIONATE\CLOTRIMAZOLE [Concomitant]
     Active Substance: BETAMETHASONE DIPROPIONATE\CLOTRIMAZOLE
     Indication: Psoriasis
     Dosage: UNK, CREAM
     Route: 065
     Dates: start: 20150626
  30. ACETAMINOPHEN\CODEINE PHOSPHATE [Concomitant]
     Active Substance: ACETAMINOPHEN\CODEINE PHOSPHATE
     Indication: Pain in extremity
     Dosage: UNK
     Route: 065
     Dates: start: 20110616
  31. FOLIC ACID [Concomitant]
     Active Substance: FOLIC ACID
     Indication: Anaemia
     Dosage: UNK
     Route: 065
     Dates: start: 20131211
  32. SERTRALINE HYDROCHLORIDE [Concomitant]
     Active Substance: SERTRALINE HYDROCHLORIDE
     Indication: Depression
     Dosage: UNK
     Route: 065
     Dates: start: 20110816
  33. SERTRALINE HYDROCHLORIDE [Concomitant]
     Active Substance: SERTRALINE HYDROCHLORIDE
     Dosage: UNK
     Route: 065
     Dates: start: 20110616
  34. CODEINE PHOSPHATE [Concomitant]
     Active Substance: CODEINE PHOSPHATE
     Indication: Product used for unknown indication
     Dosage: UNK
     Route: 065
  35. ASPIRIN [Concomitant]
     Active Substance: ASPIRIN
     Indication: Cardiovascular disorder
     Dosage: UNK
     Route: 065
     Dates: start: 20130708
  36. ATORVASTATIN [Concomitant]
     Active Substance: ATORVASTATIN
     Indication: Cardiovascular disorder
     Dosage: UNK
     Route: 065
     Dates: start: 20130708
  37. SACUBITRIL [Concomitant]
     Active Substance: SACUBITRIL
     Indication: Left ventricular dysfunction
     Dosage: UNK; 49/51
     Route: 065
     Dates: start: 20160601
  38. SACUBITRIL [Concomitant]
     Active Substance: SACUBITRIL
     Dosage: UNK
     Route: 065
     Dates: start: 20160701

REACTIONS (14)
  - Cardiac failure [Unknown]
  - Angina pectoris [Unknown]
  - Angina pectoris [Unknown]
  - Pulmonary oedema [Unknown]
  - Ventricular dysfunction [Unknown]
  - Hypotension [Recovered/Resolved]
  - Psoriasis [Unknown]
  - Contusion [Recovered/Resolved]
  - Presyncope [Unknown]
  - Fluid retention [Unknown]
  - Anaemia [Unknown]
  - Oedema peripheral [Not Recovered/Not Resolved]
  - Contusion [Recovered/Resolved]
  - Drug interaction [Recovered/Resolved]

NARRATIVE: CASE EVENT DATE: 20130919
